FAERS Safety Report 5243979-0 (Version None)
Quarter: 2007Q1

REPORT INFORMATION
  Report Type: 
  Country: None (occurrence: None)
  Receive Date: 20070220
  Receipt Date: 20070220
  Transmission Date: 20070707
  Serious: Yes (Life-Threatening, Hospitalization)
  Sender: FDA-Public Use
  Company Number: None

PATIENT
  Age: 28 Year
  Sex: Female

DRUGS (1)
  1. LAMOTRIGINE [Suspect]
     Indication: BIPOLAR DISORDER
     Dosage: PO
     Route: 048

REACTIONS (5)
  - HYPOTENSION [None]
  - PSEUDOMONAS INFECTION [None]
  - SKIN BACTERIAL INFECTION [None]
  - TACHYCARDIA [None]
  - TOXIC EPIDERMAL NECROLYSIS [None]
